FAERS Safety Report 5130859-4 (Version None)
Quarter: 2006Q4

REPORT INFORMATION
  Report Type: 
  Country: None (occurrence: None)
  Receive Date: 20061019
  Receipt Date: 20061006
  Transmission Date: 20070319
  Serious: Yes (Other)
  Sender: FDA-Public Use
  Company Number: US-SANOFI-SYNTHELABO-A03200606170

PATIENT
  Age: 84 Year
  Sex: Female

DRUGS (1)
  1. AMBIEN CR [Suspect]
     Indication: INSOMNIA
     Route: 048
     Dates: end: 20060801

REACTIONS (3)
  - FALL [None]
  - PAIN [None]
  - RIB FRACTURE [None]
